FAERS Safety Report 4751192-6 (Version None)
Quarter: 2005Q3

REPORT INFORMATION
  Report Type: 
  Country: None (occurrence: None)
  Receive Date: 20050822
  Receipt Date: 20050811
  Transmission Date: 20060218
  Serious: Yes (Life-Threatening, Hospitalization, Other)
  Sender: FDA-Public Use
  Company Number: 2005-02951

PATIENT
  Age: 63 Year
  Sex: Female

DRUGS (2)
  1. SULFASALAZINE (WATSON LABORATORIES) (SULFASALAZINE) TABLET, 500MG [Suspect]
     Indication: RHEUMATOID ARTHRITIS
     Dosage: X 2 MONTHS,
  2. PREDNISONE TAB [Concomitant]

REACTIONS (9)
  - ARTHRITIS [None]
  - CARDIOGENIC SHOCK [None]
  - DISEASE RECURRENCE [None]
  - DRUG RASH WITH EOSINOPHILIA AND SYSTEMIC SYMPTOMS [None]
  - GENERAL PHYSICAL HEALTH DETERIORATION [None]
  - INFLUENZA LIKE ILLNESS [None]
  - LYMPHADENOPATHY [None]
  - PYREXIA [None]
  - SPLENOMEGALY [None]
